FAERS Safety Report 5304792-9 (Version None)
Quarter: 2007Q2

REPORT INFORMATION
  Report Type: 
  Country: None (occurrence: None)
  Receive Date: 20070423
  Receipt Date: 20070410
  Transmission Date: 20071010
  Serious: Yes (Hospitalization)
  Sender: FDA-Public Use
  Company Number: DE-ELI_LILLY_AND_COMPANY-DE200612003488

PATIENT
  Age: 30 Year
  Sex: Female
  Weight: 60 kg

DRUGS (3)
  1. CYMBALTA [Suspect]
     Indication: DEPRESSION
     Dosage: 60 MG, 2/D
     Route: 048
     Dates: start: 20040101, end: 20061201
  2. KATADOLON [Concomitant]
     Indication: BACK PAIN
     Dosage: 100 MG, DAILY (1/D)
     Route: 048
     Dates: end: 20061201
  3. THYRONAJOD [Concomitant]
     Indication: HYPOTHYROIDISM
     Dosage: 50 UG, DAILY (1/D)
     Route: 048
     Dates: end: 20061201

REACTIONS (1)
  - MIXED HEPATOCELLULAR-CHOLESTATIC INJURY [None]
